FAERS Safety Report 9264126 (Version 2)
Quarter: 2013Q2

REPORT INFORMATION
  Report Type: Spontaneous
  Country: UY (occurrence: UY)
  Receive Date: 20130430
  Receipt Date: 20130528
  Transmission Date: 20140414
  Serious: Yes (Hospitalization)
  Sender: FDA-Public Use
  Company Number: UY-ABBOTT-13P-168-1081061-00

PATIENT
  Age: 66 Year
  Sex: Female

DRUGS (1)
  1. HUMIRA [Suspect]
     Indication: RHEUMATOID ARTHRITIS
     Dates: start: 20121210, end: 20130102

REACTIONS (3)
  - Activities of daily living impaired [Unknown]
  - Pharyngitis [Recovered/Resolved]
  - General physical health deterioration [Not Recovered/Not Resolved]
